FAERS Safety Report 24939583 (Version 2)
Quarter: 2025Q1

REPORT INFORMATION
  Report Type: Report from Study
  Country: US (occurrence: US)
  Receive Date: 20250206
  Receipt Date: 20250320
  Transmission Date: 20250409
  Serious: Yes (Hospitalization, Other)
  Sender: ABBVIE
  Company Number: US-ABBVIE-6118745

PATIENT
  Age: 31 Year
  Sex: Female

DRUGS (1)
  1. SKYRIZI [Suspect]
     Active Substance: RISANKIZUMAB-RZAA
     Indication: Psoriasis
     Route: 058
     Dates: start: 20240226

REACTIONS (7)
  - Appendicitis perforated [Not Recovered/Not Resolved]
  - Rash [Unknown]
  - Appendicitis perforated [Recovered/Resolved]
  - Infection [Unknown]
  - Skin irritation [Unknown]
  - Vomiting projectile [Unknown]
  - Illness [Unknown]

NARRATIVE: CASE EVENT DATE: 20240101
